FAERS Safety Report 13774058 (Version 1)
Quarter: 2017Q3

REPORT INFORMATION
  Report Type: Spontaneous
  Country: IT (occurrence: IT)
  Receive Date: 20170721
  Receipt Date: 20170721
  Transmission Date: 20171127
  Serious: Yes (Hospitalization)
  Sender: FDA-Public Use
  Company Number: PHHY2017IT105502

PATIENT
  Age: 58 Year
  Sex: Female

DRUGS (1)
  1. VOTRIENT [Suspect]
     Active Substance: PAZOPANIB HYDROCHLORIDE
     Indication: LEIOMYOSARCOMA METASTATIC
     Dosage: 400 MG, QD
     Route: 048
     Dates: start: 20170330, end: 20170621

REACTIONS (2)
  - Retinal detachment [Recovered/Resolved with Sequelae]
  - Visual impairment [Recovered/Resolved with Sequelae]

NARRATIVE: CASE EVENT DATE: 20170613
